FAERS Safety Report 15501499 (Version 1)
Quarter: 2018Q4

REPORT INFORMATION
  Report Type: Spontaneous
  Country: US (occurrence: US)
  Receive Date: 20181015
  Receipt Date: 20181015
  Transmission Date: 20190205
  Serious: Yes (Other)
  Sender: FDA-Public Use
  Company Number: US-AMGEN-USASP2018122296

PATIENT
  Age: 5 Year
  Sex: Female

DRUGS (1)
  1. BLINCYTO [Suspect]
     Active Substance: BLINATUMOMAB
     Indication: PRODUCT USED FOR UNKNOWN INDICATION
     Dosage: 15 MUG/M2, UNK
     Route: 042
     Dates: start: 20180827

REACTIONS (2)
  - Neurotoxicity [Unknown]
  - Pyrexia [Unknown]

NARRATIVE: CASE EVENT DATE: 201808
